FAERS Safety Report 5428681-4 (Version None)
Quarter: 2007Q3

REPORT INFORMATION
  Report Type: 
  Country: None (occurrence: None)
  Receive Date: 20070828
  Receipt Date: 20070823
  Transmission Date: 20080115
  Serious: Yes (Hospitalization, Other)
  Sender: FDA-Public Use
  Company Number: DE-SHR-DE-2006-007255

PATIENT
  Age: 45 Year
  Sex: Male

DRUGS (3)
  1. BETAFERON [Suspect]
     Route: 058
     Dates: start: 20060316, end: 20060316
  2. BETAFERON [Suspect]
     Route: 058
  3. PREGABALIN [Concomitant]

REACTIONS (6)
  - CHEST PAIN [None]
  - CHILLS [None]
  - DIZZINESS [None]
  - MYOCARDITIS [None]
  - PHLEBITIS [None]
  - PYREXIA [None]
